FAERS Safety Report 24239814 (Version 1)
Quarter: 2024Q3

REPORT INFORMATION
  Report Type: Report from Study
  Country: US (occurrence: US)
  Receive Date: 20240822
  Receipt Date: 20240822
  Transmission Date: 20241017
  Serious: Yes (Hospitalization)
  Sender: PFIZER
  Company Number: US-PFIZER INC-PV202400090234

PATIENT
  Age: 62 Year
  Sex: Female

DRUGS (2)
  1. MEKTOVI [Suspect]
     Active Substance: BINIMETINIB
     Indication: Malignant melanoma
     Dosage: 45MG (3-15MG) TAKE THREE TABLETS TWICE DAILY
     Route: 048
     Dates: start: 20240705
  2. BRAFTOVI [Suspect]
     Active Substance: ENCORAFENIB
     Indication: Malignant melanoma
     Dosage: 450MG (6-75MG) TAKE SIX CAPSULES DAILY
     Route: 048
     Dates: start: 20240705

REACTIONS (2)
  - Hypotension [Unknown]
  - Diarrhoea [Unknown]
